FAERS Safety Report 7885715-5 (Version None)
Quarter: 2011Q4

REPORT INFORMATION
  Report Type: 
  Country: None (occurrence: None)
  Receive Date: 20111102
  Receipt Date: 20111018
  Transmission Date: 20120403
  Serious: Yes (Hospitalization)
  Sender: FDA-Public Use
  Company Number: US-ASTRAZENECA-2011SE56656

PATIENT
  Age: 61 Year
  Sex: Female
  Weight: 127 kg

DRUGS (8)
  1. SEROQUEL [Suspect]
     Indication: DEPRESSION
     Route: 048
     Dates: start: 20080101
  2. SEROQUEL [Suspect]
     Indication: ANXIETY
     Route: 048
     Dates: start: 20080101
  3. SEROQUEL [Suspect]
     Route: 048
  4. CLERANEX [Concomitant]
     Indication: SINUS DISORDER
     Route: 048
     Dates: start: 20010101
  5. SEROQUEL [Suspect]
     Indication: SLEEP DISORDER
     Route: 048
     Dates: start: 20080101
  6. SEROQUEL [Suspect]
     Route: 048
  7. CRESTOR [Suspect]
     Indication: BLOOD CHOLESTEROL
     Route: 048
     Dates: start: 19900101
  8. SEROQUEL [Suspect]
     Route: 048

REACTIONS (4)
  - FACTITIOUS DISORDER [None]
  - DRUG PRESCRIBING ERROR [None]
  - FALL [None]
  - LIMB INJURY [None]
